FAERS Safety Report 6895467-3 (Version None)
Quarter: 2010Q3

REPORT INFORMATION
  Report Type: 
  Country: None (occurrence: None)
  Receive Date: 20100728
  Receipt Date: 20100713
  Transmission Date: 20110219
  Serious: Yes (Hospitalization, Other)
  Sender: FDA-Public Use
  Company Number: 2010087867

PATIENT
  Age: 43 Year
  Sex: Male

DRUGS (6)
  1. FRAGMIN [Suspect]
     Indication: ANTICOAGULANT THERAPY
     Dosage: 16.400 IU, 1X/DAY, SUBCUTANEOUS
     Route: 058
  2. HYDROXYUREA [Concomitant]
  3. INTERFERON ALFA-2B (INTERFERON ALFA-2B) [Concomitant]
  4. CYCLOBENZAPRINE [Concomitant]
  5. ACETAMINOPHEN AND OXYCODONE HCL [Concomitant]
  6. WARFARIN SODIUM [Concomitant]

REACTIONS (7)
  - ABDOMINAL PAIN [None]
  - CHILLS [None]
  - HEADACHE [None]
  - HYPERSENSITIVITY [None]
  - INTERNATIONAL NORMALISED RATIO DECREASED [None]
  - PAIN [None]
  - TENDERNESS [None]
